FAERS Safety Report 9236997 (Version 1)
Quarter: 2013Q2

REPORT INFORMATION
  Report Type: Spontaneous
  Country: US (occurrence: US)
  Receive Date: 20130417
  Receipt Date: 20130417
  Transmission Date: 20140414
  Serious: No
  Sender: FDA-Public Use
  Company Number: US-PFIZER INC-2013118866

PATIENT
  Sex: Female

DRUGS (2)
  1. SUTENT [Suspect]
     Indication: NEOPLASM MALIGNANT
     Dosage: UNK
     Dates: start: 201304
  2. AFINITOR [Concomitant]
     Indication: NEOPLASM MALIGNANT

REACTIONS (4)
  - Malaise [Not Recovered/Not Resolved]
  - Swelling face [Not Recovered/Not Resolved]
  - Glassy eyes [Not Recovered/Not Resolved]
  - Ocular hyperaemia [Not Recovered/Not Resolved]
